FAERS Safety Report 4397895-7 (Version None)
Quarter: 2004Q3

REPORT INFORMATION
  Report Type: 
  Country: None (occurrence: None)
  Receive Date: 20040714
  Receipt Date: 20040706
  Transmission Date: 20050211
  Serious: Yes (Other)
  Sender: FDA-Public Use
  Company Number: US-MERCK-0407USA00473

PATIENT
  Age: 74 Year
  Sex: Female

DRUGS (5)
  1. ALBUTEROL [Concomitant]
     Route: 065
     Dates: end: 20040401
  2. ADVAIR DISKUS 100/50 [Concomitant]
     Route: 065
     Dates: end: 20040401
  3. PREDNISONE [Concomitant]
     Route: 065
     Dates: end: 20040401
  4. ZOCOR [Suspect]
     Route: 048
     Dates: end: 20040401
  5. ZOCOR [Suspect]
     Route: 048
     Dates: start: 20040601

REACTIONS (1)
  - ALLERGIC GRANULOMATOUS ANGIITIS [None]
